FAERS Safety Report 25896017 (Version 2)
Quarter: 2025Q4

REPORT INFORMATION
  Report Type: Spontaneous
  Country: US (occurrence: US)
  Receive Date: 20251008
  Receipt Date: 20251020
  Transmission Date: 20260118
  Serious: Yes (Hospitalization)
  Sender: PFIZER
  Company Number: US-PFIZER INC-202500197100

PATIENT
  Age: 77 Year
  Sex: Male
  Weight: 106 kg

DRUGS (20)
  1. VYNDAMAX [Suspect]
     Active Substance: TAFAMIDIS
     Indication: Cardiac amyloidosis
     Dosage: 61 MG, DAILY
     Route: 048
     Dates: start: 20250925, end: 20251002
  2. TYLENOL ARTHRITIS PAIN [Concomitant]
     Active Substance: ACETAMINOPHEN
     Indication: Pain
     Dosage: 650 MG, AS NEEDED EVERY 6 HOURS
     Route: 048
  3. ELIQUIS [Concomitant]
     Active Substance: APIXABAN
     Dosage: 5 MG, 2X/DAY
     Route: 048
  4. ASPIRIN [Concomitant]
     Active Substance: ASPIRIN
     Dosage: 81 MG, DAILY
     Route: 048
  5. LIPITOR [Concomitant]
     Active Substance: ATORVASTATIN CALCIUM
     Indication: Prophylaxis
     Dosage: 10 MG, DAILY
     Route: 048
  6. JARDIANCE [Concomitant]
     Active Substance: EMPAGLIFLOZIN
     Dosage: 12.5 MG, DAILY
     Route: 048
  7. NEURONTIN [Concomitant]
     Active Substance: GABAPENTIN
     Dosage: 300 MG, 1X/DAY NIGHTLY
     Route: 048
  8. GLUCOTROL [Concomitant]
     Active Substance: GLIPIZIDE
     Dosage: 5 MG, DAILY 30 MINUTES BEFORE MAIN MEAL OF DAY
     Route: 048
  9. DUONEB [Concomitant]
     Active Substance: ALBUTEROL SULFATE\IPRATROPIUM BROMIDE
     Indication: Dyspnoea
     Dosage: 0.5 MG-3 MG (2.5 MG BASE)/3 ML INHL NEB SOLN/TAKE 3 ML BY NEBULIZATION EVERY 6 HOURS IF NEEDED
  10. LIDODERM [Concomitant]
     Active Substance: LIDOCAINE
     Indication: Pain
     Dosage: APPLY TO THE AFFECTED AREA DAILY/REMOVE PATCH AFTER 12 HRS
  11. TOPROL XL [Concomitant]
     Active Substance: METOPROLOL SUCCINATE
     Dosage: 12.5 MG, DAILY
     Route: 048
  12. REMERON [Concomitant]
     Active Substance: MIRTAZAPINE
     Indication: Insomnia
     Dosage: TAKE ONE-HALF TO WHOLE TAB BY MOUTH EVERY NIGHT
     Route: 048
  13. TRILEPTAL [Concomitant]
     Active Substance: OXCARBAZEPINE
     Dosage: 300 MG, 2X/DAY
     Route: 048
  14. PROTONIL [PANTOPRAZOLE SODIUM SESQUIHYDRATE] [Concomitant]
     Indication: Dyspepsia
     Dosage: 40 MG, AS NEEDED DAILY
     Route: 048
  15. KLOR-CON [Concomitant]
     Active Substance: POTASSIUM CHLORIDE
     Dosage: 10 MEQ, DAILY
     Route: 048
  16. ZANAFLEX [Concomitant]
     Active Substance: TIZANIDINE HYDROCHLORIDE
     Indication: Pain
     Dosage: TAKE ONE-HALF TO WHOLE TABLET BY MOUTH EVERY NIGHT
     Route: 048
  17. SOAANZ [Concomitant]
     Active Substance: TORSEMIDE
     Dosage: 60 MG, DAILY
     Route: 048
  18. TRAMADOL [Concomitant]
     Active Substance: TRAMADOL
  19. TIZANIDINE [Concomitant]
     Active Substance: TIZANIDINE
  20. MIRTAZAPINE [Concomitant]
     Active Substance: MIRTAZAPINE

REACTIONS (1)
  - Seizure [Recovered/Resolved]

NARRATIVE: CASE EVENT DATE: 20250930
